FAERS Safety Report 10664903 (Version 1)
Quarter: 2014Q4

REPORT INFORMATION
  Report Type: Spontaneous
  Country: US (occurrence: None)
  Receive Date: 20141208
  Receipt Date: 20141208
  Transmission Date: 20150529
  Serious: No
  Sender: FDA-Public Use
  Company Number: 2014TUS007742

PATIENT
  Age: 59 Year
  Sex: Male
  Weight: 113.4 kg

DRUGS (2)
  1. BRINTELLIX [Suspect]
     Active Substance: VORTIOXETINE HYDROBROMIDE
     Indication: DEPRESSION
     Route: 048
     Dates: end: 20140730
  2. ANTIBIOTICS (ANTIBIOTICS) [Concomitant]
     Active Substance: UNSPECIFIED INGREDIENT

REACTIONS (2)
  - Diarrhoea [None]
  - Constipation [None]

NARRATIVE: CASE EVENT DATE: 20140731
